FAERS Safety Report 8973131 (Version 1)
Quarter: 2012Q4

REPORT INFORMATION
  Report Type: 
  Country: US (occurrence: US)
  Receive Date: 20121219
  Receipt Date: 20121219
  Transmission Date: 20130627
  Serious: Yes (Other)
  Sender: FDA-Public Use
  Company Number: US-MYLANLABS-2012S1025321

PATIENT
  Age: 56 Year
  Sex: Female
  Weight: 76 kg

DRUGS (2)
  1. ARMOUR THYROID [Suspect]
     Indication: HYPOTHYROIDISM
     Dosage: 9 grains (540mg) Armour Thyroid once daily (levothyroxine sodium 342 microg/liothyronine 81 microg)
     Route: 065
     Dates: start: 1995
  2. LEVOTHYROXINE SODIUM [Suspect]
     Indication: HYPOTHYROIDISM
     Dosage: 150 microg daily
     Route: 065
     Dates: start: 200912

REACTIONS (1)
  - Hypothyroidism [Recovering/Resolving]
